FAERS Safety Report 5039303-9 (Version None)
Quarter: 2006Q2

REPORT INFORMATION
  Report Type: 
  Country: None (occurrence: None)
  Receive Date: 20060629
  Receipt Date: 20060622
  Transmission Date: 20061013
  Serious: Yes (Death)
  Sender: FDA-Public Use
  Company Number: ES-JNJFOC-20060600694

PATIENT
  Sex: Male

DRUGS (3)
  1. RISPERDAL CONSTA [Suspect]
     Indication: SCHIZOPHRENIA, PARANOID TYPE
     Route: 030
  2. CLOTIAPINE [Concomitant]
  3. ORFIDAL [Concomitant]
     Indication: ANXIETY
     Route: 048

REACTIONS (1)
  - MYOCARDIAL INFARCTION [None]
